FAERS Safety Report 10204776 (Version 1)
Quarter: 2014Q2

REPORT INFORMATION
  Report Type: Spontaneous
  Country: US (occurrence: None)
  Receive Date: 20140527
  Receipt Date: 20140527
  Transmission Date: 20141212
  Serious: Yes (Other)
  Sender: FDA-Public Use
  Company Number: None

PATIENT
  Age: 24 Year
  Sex: Female
  Weight: 90.72 kg

DRUGS (2)
  1. BUTRANS [Suspect]
     Indication: NECK PAIN
     Dates: start: 20140523, end: 20140524
  2. BUTRANS [Suspect]
     Indication: MYALGIA
     Dates: start: 20140523, end: 20140524

REACTIONS (3)
  - Headache [None]
  - Nausea [None]
  - Vomiting [None]
